FAERS Safety Report 7297777-7 (Version None)
Quarter: 2011Q1

REPORT INFORMATION
  Report Type: 
  Country: None (occurrence: None)
  Receive Date: 20110214
  Receipt Date: 20110214
  Transmission Date: 20110831
  Serious: Yes (Other)
  Sender: FDA-Public Use
  Company Number: None

PATIENT
  Age: 60 Year
  Sex: Female
  Weight: 104.3273 kg

DRUGS (3)
  1. PROVIGIL [Suspect]
     Indication: CONTINUOUS POSITIVE AIRWAY PRESSURE
     Dosage: 1 PILL SAME TIME OF DAY MORNIN DAILY PO
     Route: 048
     Dates: start: 20110122, end: 20110129
  2. PROVIGIL [Suspect]
     Indication: SLEEP APNOEA SYNDROME
     Dosage: 1 PILL SAME TIME OF DAY MORNIN DAILY PO
     Route: 048
     Dates: start: 20110122, end: 20110129
  3. PROVIGIL [Suspect]
     Indication: FATIGUE
     Dosage: 1 PILL SAME TIME OF DAY MORNIN DAILY PO
     Route: 048
     Dates: start: 20110122, end: 20110129

REACTIONS (4)
  - FEELING ABNORMAL [None]
  - FRUSTRATION [None]
  - ECONOMIC PROBLEM [None]
  - MEMORY IMPAIRMENT [None]
